FAERS Safety Report 17584598 (Version 13)
Quarter: 2025Q4

REPORT INFORMATION
  Report Type: Report from Study
  Country: US (occurrence: US)
  Receive Date: 20200326
  Receipt Date: 20251229
  Transmission Date: 20260118
  Serious: Yes (Other)
  Sender: PFIZER
  Company Number: US-PFIZER INC-2020125727

PATIENT
  Age: 72 Year
  Sex: Female

DRUGS (3)
  1. IBRANCE [Suspect]
     Active Substance: PALBOCICLIB
     Indication: Breast cancer female
     Dosage: 100 MG, UNK
  2. IBRANCE [Suspect]
     Active Substance: PALBOCICLIB
     Dosage: 75 MG, CYCLIC (ONCE FOR 3 WEEKS ON AND 1 WEEK OFF EVERY 28 DAYS, 1 TAB DAILY)
     Route: 048
  3. IBRANCE [Suspect]
     Active Substance: PALBOCICLIB
     Dosage: 125 MG, CYCLIC (TAKE ONE BY MOUTH DAILY FOR ONE WEEK, AND ONE WEEK)
     Route: 048
     Dates: start: 20190822

REACTIONS (6)
  - Type 2 diabetes mellitus [Unknown]
  - Nephrectomy [Unknown]
  - Memory impairment [Unknown]
  - Stress [Unknown]
  - Off label use [Unknown]
  - Product use issue [Unknown]

NARRATIVE: CASE EVENT DATE: 20190822
